FAERS Safety Report 12595452 (Version 1)
Quarter: 2016Q3

REPORT INFORMATION
  Report Type: Spontaneous
  Country: US (occurrence: US)
  Receive Date: 20160726
  Receipt Date: 20160726
  Transmission Date: 20161109
  Serious: No
  Sender: FDA-Public Use
  Company Number: US-JAZZ-2016-US-007013

PATIENT
  Age: 3 Year
  Sex: Female

DRUGS (1)
  1. DEFITELIO [Suspect]
     Active Substance: DEFIBROTIDE SODIUM
     Indication: STEM CELL TRANSPLANT

REACTIONS (3)
  - Stomatitis [Unknown]
  - Mouth haemorrhage [Unknown]
  - Gingival bleeding [Unknown]
